FAERS Safety Report 9311854 (Version 2)
Quarter: 2013Q2

REPORT INFORMATION
  Report Type: Spontaneous
  Country: JP (occurrence: JP)
  Receive Date: 20130528
  Receipt Date: 20130612
  Transmission Date: 20140414
  Serious: Yes (Hospitalization)
  Sender: FDA-Public Use
  Company Number: PHHY2013JP051094

PATIENT
  Age: 52 Year
  Sex: Female

DRUGS (2)
  1. 5-FLUOROURACIL [Suspect]
     Indication: OESOPHAGEAL CARCINOMA
     Dosage: 800 MG/M2
     Route: 042
  2. CISPLATIN [Suspect]
     Indication: OESOPHAGEAL CARCINOMA
     Dosage: 80 MG/M2 ON DAY 1

REACTIONS (20)
  - Fall [Unknown]
  - Renal salt-wasting syndrome [Recovered/Resolved]
  - Urine output increased [Recovered/Resolved]
  - Hyperhidrosis [Unknown]
  - Hyponatraemia [Recovered/Resolved]
  - Posterior reversible encephalopathy syndrome [Recovered/Resolved]
  - Loss of consciousness [Unknown]
  - Speech disorder [Recovered/Resolved]
  - Hypoaesthesia [Recovered/Resolved]
  - Nausea [Unknown]
  - Diplegia [Recovering/Resolving]
  - Tremor [Recovering/Resolving]
  - Oesophageal carcinoma [Unknown]
  - Oesophageal cancer metastatic [Unknown]
  - Metastases to lymph nodes [Unknown]
  - Lymphadenopathy [Unknown]
  - Tumour invasion [Unknown]
  - Neoplasm [Unknown]
  - Pleural fibrosis [Unknown]
  - Malignant neoplasm progression [Unknown]
